FAERS Safety Report 13301781 (Version 1)
Quarter: 2017Q1

REPORT INFORMATION
  Report Type: Spontaneous
  Country: US (occurrence: US)
  Receive Date: 20170307
  Receipt Date: 20170307
  Transmission Date: 20170428
  Serious: Yes (Life-Threatening, Hospitalization, Disabling)
  Sender: FDA-Public Use
  Company Number: None

PATIENT
  Age: 59 Year
  Sex: Female
  Weight: 59.02 kg

DRUGS (7)
  1. MYCOPHENOLATE 250MG CAPSULES [Suspect]
     Active Substance: MYCOPHENOLATE MOFETIL
     Indication: LIVER TRANSPLANT REJECTION
     Dosage: ?          QUANTITY:AKING OR?WV)? TA,- _LTA -;?
     Route: 048
     Dates: start: 20101216, end: 201702
  2. BUPROPION HCL EXTENDED RELEASE (SR) 150MG TABLETS (SANDOZ) [Concomitant]
     Active Substance: BUPROPION HYDROCHLORIDE
  3. LEVOTHYROXINE. [Concomitant]
     Active Substance: LEVOTHYROXINE
  4. PROGRAF [Concomitant]
     Active Substance: TACROLIMUS\TACROLIMUS ANHYDROUS
  5. MULTIVITAMIN [Concomitant]
     Active Substance: VITAMINS
  6. ESOMEPRAZOLE MAGNESIUM. [Suspect]
     Active Substance: ESOMEPRAZOLE MAGNESIUM
  7. DICYCLOMINE [Concomitant]
     Active Substance: DICYCLOMINE HYDROCHLORIDE

REACTIONS (38)
  - Haematochezia [None]
  - Heart rate increased [None]
  - Post-traumatic stress disorder [None]
  - Mental impairment [None]
  - Insomnia [None]
  - Pulmonary mass [None]
  - Hepatic cyst [None]
  - Memory impairment [None]
  - Melaena [None]
  - Dyspnoea [None]
  - Sleep apnoea syndrome [None]
  - Hyperthyroidism [None]
  - Loss of consciousness [None]
  - Candida infection [None]
  - Pharyngeal haemorrhage [None]
  - Blindness transient [None]
  - Pain [None]
  - Sinus disorder [None]
  - Weight increased [None]
  - Dizziness [None]
  - Headache [None]
  - Speech disorder [None]
  - Visual impairment [None]
  - Agitation [None]
  - Fatigue [None]
  - Gastrointestinal disorder [None]
  - Oral disorder [None]
  - Abdominal pain upper [None]
  - Confusional state [None]
  - Panic attack [None]
  - Stomatitis [None]
  - Balance disorder [None]
  - Abnormal behaviour [None]
  - Nervousness [None]
  - Depression [None]
  - Asthenia [None]
  - Abdominal discomfort [None]
  - Listless [None]

NARRATIVE: CASE EVENT DATE: 20101216
